FAERS Safety Report 21959141 (Version 3)
Quarter: 2023Q1

REPORT INFORMATION
  Report Type: Spontaneous
  Country: CZ (occurrence: CZ)
  Receive Date: 20230206
  Receipt Date: 20230228
  Transmission Date: 20230417
  Serious: Yes (Death, Hospitalization, Other)
  Sender: FDA-Public Use
  Company Number: None

PATIENT
  Age: 59 Year
  Sex: Male

DRUGS (9)
  1. METHYLPREDNISOLONE [Suspect]
     Active Substance: METHYLPREDNISOLONE
     Indication: COVID-19 pneumonia
     Dosage: FOR THE FIRST FOUR MONTHS, THE PATIENT CONTINUOUSLY RECEIVED SYSTEMIC CORTICOSTEROID THERAPY WITH ME
     Dates: start: 2021, end: 2021
  2. DEXAMETHASONE [Suspect]
     Active Substance: DEXAMETHASONE
     Indication: COVID-19 treatment
     Dosage: UNK
     Dates: start: 202102, end: 2021
  3. HEPARIN [Concomitant]
     Active Substance: HEPARIN SODIUM
     Indication: Anticoagulant therapy
     Dosage: UNK
     Dates: start: 2021
  4. OXYGEN [Concomitant]
     Active Substance: OXYGEN
     Indication: Supportive care
     Dosage: HIGH-FLOW
     Route: 045
     Dates: start: 2021
  5. ARGATROBAN [Concomitant]
     Active Substance: ARGATROBAN
     Indication: Anticoagulant therapy
  6. ENOXAPARIN SODIUM [Concomitant]
     Active Substance: ENOXAPARIN SODIUM
     Indication: Anticoagulant therapy
     Dosage: FOR A SHORT TIME
     Route: 058
  7. ENOXAPARIN SODIUM [Concomitant]
     Active Substance: ENOXAPARIN SODIUM
     Dosage: LONGEST TIME (ESTIMATED 5 MONTHS) ADMINISTERED AT A DILUTION OF 1.0ML TO 50ML AT A RATE OF ABOUT 3.0
     Route: 042
     Dates: start: 2021
  8. FLUCONAZOLE [Concomitant]
     Active Substance: FLUCONAZOLE
     Indication: Antifungal treatment
     Dosage: 0.8 G
  9. ANIDULAFUNGIN [Concomitant]
     Active Substance: ANIDULAFUNGIN
     Indication: Antifungal treatment
     Dosage: 2.1 G

REACTIONS (8)
  - Sepsis [Fatal]
  - Respiratory tract infection [Fatal]
  - Herpes virus infection [Unknown]
  - Enterococcal infection [Unknown]
  - Haematological infection [Unknown]
  - Superinfection bacterial [Unknown]
  - Osteoporosis [Unknown]
  - Femoral neck fracture [Unknown]
